FAERS Safety Report 18053132 (Version 2)
Quarter: 2021Q4

REPORT INFORMATION
  Report Type: Spontaneous
  Country: US (occurrence: US)
  Receive Date: 20200722
  Receipt Date: 20211028
  Transmission Date: 20220303
  Serious: Yes (Other)
  Sender: FDA-Public Use
  Company Number: US-SAARTEMIS-SAC202007170184

PATIENT
  Age: 50 Year
  Sex: Male

DRUGS (1)
  1. ZANTAC [Suspect]
     Active Substance: RANITIDINE HYDROCHLORIDE
     Indication: Dyspepsia
     Dosage: 150 MG, FREQUENCY : OTHER
     Dates: start: 200801, end: 201912

REACTIONS (2)
  - Haematological malignancy [Unknown]
  - Leukaemia [Unknown]

NARRATIVE: CASE EVENT DATE: 20180501
